FAERS Safety Report 6348410-X (Version None)
Quarter: 2009Q3

REPORT INFORMATION
  Report Type: 
  Country: None (occurrence: None)
  Receive Date: 20090911
  Receipt Date: 20090908
  Transmission Date: 20100115
  Serious: Yes (Other)
  Sender: FDA-Public Use
  Company Number: US-BIOGENIDEC-2009BI024633

PATIENT
  Age: 48 Year
  Sex: Male

DRUGS (2)
  1. TYSABRI [Suspect]
     Indication: MULTIPLE SCLEROSIS
     Route: 042
     Dates: start: 20090724
  2. KEPPRA [Concomitant]
     Indication: COMPLEX PARTIAL SEIZURES
     Dates: start: 20070801

REACTIONS (1)
  - COMPLEX PARTIAL SEIZURES [None]
